FAERS Safety Report 12795315 (Version 3)
Quarter: 2016Q4

REPORT INFORMATION
  Report Type: Spontaneous
  Country: US (occurrence: US)
  Receive Date: 20160929
  Receipt Date: 20161108
  Transmission Date: 20170207
  Serious: No
  Sender: FDA-Public Use
  Company Number: US-GLAXOSMITHKLINE-US2016140873

PATIENT
  Age: 59 Year
  Sex: Female

DRUGS (6)
  1. LOSARTAN. [Concomitant]
     Active Substance: LOSARTAN
  2. SYNTHROID [Concomitant]
     Active Substance: LEVOTHYROXINE SODIUM
  3. SINGULAIR [Concomitant]
     Active Substance: MONTELUKAST SODIUM
  4. BREO ELLIPTA [Suspect]
     Active Substance: FLUTICASONE FUROATE\VILANTEROL TRIFENATATE
     Indication: ASTHMA
     Dosage: 1 PUFF(S), 1D
     Route: 055
     Dates: start: 201604
  5. PROAIR HFA [Concomitant]
     Active Substance: ALBUTEROL SULFATE
  6. ALBUTEROL. [Concomitant]
     Active Substance: ALBUTEROL

REACTIONS (4)
  - Feeling abnormal [Recovering/Resolving]
  - Product quality issue [Unknown]
  - Asthma [Recovering/Resolving]
  - Therapeutic response decreased [Unknown]

NARRATIVE: CASE EVENT DATE: 20160921
